FAERS Safety Report 7267581-4 (Version None)
Quarter: 2011Q1

REPORT INFORMATION
  Report Type: 
  Country: None (occurrence: None)
  Receive Date: 20110201
  Receipt Date: 20100601
  Transmission Date: 20110831
  Serious: No
  Sender: FDA-Public Use
  Company Number: US-ABBOTT-10P-163-0631424-00

PATIENT
  Sex: Female

DRUGS (2)
  1. 17 ALPHA-HYDROXYPROGESTEONE CAPROATE [Concomitant]
     Indication: PREMATURE LABOUR
     Dosage: FROM 20-35 WK
  2. HUMIRA [Suspect]
     Indication: CROHN'S DISEASE
     Route: 058
     Dates: start: 20071201

REACTIONS (4)
  - VULVOVAGINAL MYCOTIC INFECTION [None]
  - PYREXIA [None]
  - HERPES ZOSTER [None]
  - INFLUENZA [None]
